FAERS Safety Report 11448510 (Version 1)
Quarter: 2015Q3

REPORT INFORMATION
  Report Type: Spontaneous
  Country: JP (occurrence: JP)
  Receive Date: 20150902
  Receipt Date: 20150902
  Transmission Date: 20151125
  Serious: Yes (Hospitalization, Other)
  Sender: FDA-Public Use
  Company Number: JP-JPN-A200905697

PATIENT
  Age: 33 Year
  Sex: Male

DRUGS (7)
  1. LEXIN [Concomitant]
     Active Substance: CEPHALEXIN
     Indication: CONVULSION PROPHYLAXIS
     Dosage: 200 MG, BID
     Dates: start: 20080527, end: 20080811
  2. LAMOTRIGINE. [Suspect]
     Active Substance: LAMOTRIGINE
     Dosage: 50 MG, BID
     Route: 048
     Dates: start: 20090606, end: 20090611
  3. EXCEGRAN [Concomitant]
     Active Substance: ZONISAMIDE
     Dosage: 100 MG, QD
     Dates: start: 20080203, end: 20090522
  4. EXCEGRAN [Concomitant]
     Active Substance: ZONISAMIDE
     Indication: CONVULSION PROPHYLAXIS
     Dosage: 100 MG, QD
     Dates: start: 20081226, end: 20090202
  5. LEXIN [Concomitant]
     Active Substance: CEPHALEXIN
     Dosage: 100 MG, QD
     Dates: start: 20080812
  6. TEGRETOL [Concomitant]
     Active Substance: CARBAMAZEPINE
     Dosage: 200 MG, TID
  7. LAMOTRIGINE. [Suspect]
     Active Substance: LAMOTRIGINE
     Indication: EPILEPSY
     Dosage: 50 MG, QD
     Route: 048
     Dates: start: 20090523, end: 20090605

REACTIONS (5)
  - Rash [Unknown]
  - Pyrexia [Unknown]
  - Jaundice [Unknown]
  - Drug reaction with eosinophilia and systemic symptoms [Unknown]
  - Liver disorder [Recovering/Resolving]

NARRATIVE: CASE EVENT DATE: 20090608
